FAERS Safety Report 23960364 (Version 1)
Quarter: 2024Q2

REPORT INFORMATION
  Report Type: Spontaneous
  Country: CA (occurrence: None)
  Receive Date: 20240611
  Receipt Date: 20240611
  Transmission Date: 20240716
  Serious: Yes (Death)
  Sender: FDA-Public Use
  Company Number: CA-ROCHE-3579798

PATIENT

DRUGS (19)
  1. RITUXIMAB [Suspect]
     Active Substance: RITUXIMAB
     Indication: Haematopoietic stem cell mobilisation
     Route: 065
  2. RITUXIMAB [Suspect]
     Active Substance: RITUXIMAB
     Indication: B-cell lymphoma
  3. FILGRASTIM [Suspect]
     Active Substance: FILGRASTIM
     Indication: Haematopoietic stem cell mobilisation
     Route: 065
  4. BUSULFAN [Concomitant]
     Active Substance: BUSULFAN
     Indication: B-cell lymphoma
  5. CARMUSTINE [Concomitant]
     Active Substance: CARMUSTINE
     Indication: B-cell lymphoma
  6. CISPLATIN [Concomitant]
     Active Substance: CISPLATIN
     Indication: B-cell lymphoma
  7. CYCLOPHOSPHAMIDE [Concomitant]
     Active Substance: CYCLOPHOSPHAMIDE
     Indication: B-cell lymphoma
  8. CYTARABINE [Concomitant]
     Active Substance: CYTARABINE
     Indication: B-cell lymphoma
  9. DEXAMETHASONE [Concomitant]
     Active Substance: DEXAMETHASONE
     Indication: B-cell lymphoma
  10. DOXORUBICIN [Concomitant]
     Active Substance: DOXORUBICIN
     Indication: B-cell lymphoma
  11. ETOPOSIDE [Concomitant]
     Active Substance: ETOPOSIDE
     Indication: B-cell lymphoma
  12. GEMCITABINE [Concomitant]
     Active Substance: GEMCITABINE
     Indication: B-cell lymphoma
  13. IFOSFAMIDE [Concomitant]
     Active Substance: IFOSFAMIDE
     Indication: B-cell lymphoma
  14. MELPHALAN [Concomitant]
     Active Substance: MELPHALAN
     Indication: B-cell lymphoma
  15. METHOTREXATE [Concomitant]
     Active Substance: METHOTREXATE
     Indication: Prophylaxis
     Route: 042
  16. METHOTREXATE [Concomitant]
     Active Substance: METHOTREXATE
     Indication: B-cell lymphoma
  17. PREDNISONE [Concomitant]
     Active Substance: PREDNISONE
     Indication: B-cell lymphoma
  18. THIOTEPA [Concomitant]
     Active Substance: THIOTEPA
     Indication: B-cell lymphoma
  19. VINCRISTINE [Concomitant]
     Active Substance: VINCRISTINE
     Indication: B-cell lymphoma

REACTIONS (6)
  - B-cell lymphoma [Fatal]
  - B-cell lymphoma recurrent [Fatal]
  - COVID-19 [Fatal]
  - Myeloproliferative neoplasm [Fatal]
  - Pulmonary fibrosis [Fatal]
  - Therapy partial responder [Fatal]
